FAERS Safety Report 6788050-1 (Version None)
Quarter: 2010Q2

REPORT INFORMATION
  Report Type: 
  Country: None (occurrence: None)
  Receive Date: 20100623
  Receipt Date: 20080218
  Transmission Date: 20101027
  Serious: Yes (Other)
  Sender: FDA-Public Use
  Company Number: US-PFIZER INC-2007107643

PATIENT
  Sex: Male
  Weight: 107.5 kg

DRUGS (7)
  1. SUTENT [Suspect]
     Indication: RENAL CELL CARCINOMA
     Route: 048
     Dates: start: 20060919, end: 20070525
  2. LASIX [Concomitant]
  3. ACTOS [Concomitant]
  4. LIPITOR [Concomitant]
  5. BUMEX [Concomitant]
  6. SPIRIVA [Concomitant]
  7. GLIPIZIDE [Concomitant]

REACTIONS (1)
  - CARDIAC FAILURE CONGESTIVE [None]
